FAERS Safety Report 9471101 (Version 3)
Quarter: 2013Q3

REPORT INFORMATION
  Report Type: Spontaneous
  Country: JP (occurrence: JP)
  Receive Date: 20130822
  Receipt Date: 20130910
  Transmission Date: 20140515
  Serious: Yes (Hospitalization, Other)
  Sender: FDA-Public Use
  Company Number: JP-B.I. PHARMACEUTICALS,INC./RIDGEFIELD-2013-BI-24946NB

PATIENT
  Age: 80 Year
  Sex: Female

DRUGS (4)
  1. BI-SIFROL [Suspect]
     Indication: PARKINSON^S DISEASE
     Dosage: 1.5 MG
     Route: 048
  2. MENESIT [Suspect]
     Indication: PARKINSON^S DISEASE
     Dosage: 300 MG
     Route: 048
  3. VECTAN / TOCOPHEROL ACETATE [Concomitant]
     Route: 048
  4. VICCILLIN / AMPICILLIN HYDRATE [Concomitant]
     Dosage: 750 MG
     Route: 048

REACTIONS (2)
  - Pubis fracture [Recovered/Resolved]
  - Osteomyelitis [Recovered/Resolved]
